FAERS Safety Report 24758731 (Version 1)
Quarter: 2024Q4

REPORT INFORMATION
  Report Type: Spontaneous
  Country: US (occurrence: None)
  Receive Date: 20241219
  Receipt Date: 20241219
  Transmission Date: 20250114
  Serious: Yes (Hospitalization)
  Sender: Public
  Company Number: None

PATIENT
  Sex: Female

DRUGS (30)
  1. ZELBORAF [Suspect]
     Active Substance: VEMURAFENIB
     Indication: Metastases to central nervous system
     Dosage: FREQUENCY : TWICE A DAY;?
     Route: 048
     Dates: start: 20241010
  2. COTELLIC [Suspect]
     Active Substance: COBIMETINIB
     Indication: Metastases to central nervous system
     Dosage: FREQUENCY : DAILY;?
     Route: 048
     Dates: start: 20241010
  3. ALPRAZOLAM TAB 0.25MG [Concomitant]
  4. AMLODIPINE TAB5MG [Concomitant]
  5. BRAFTOVI [Concomitant]
     Active Substance: ENCORAFENIB
  6. COTELLIC [Concomitant]
     Active Substance: COBIMETINIB
  7. DEXAMETHASON TAB 1 MG [Concomitant]
  8. DEXAMETHASON TAB 2MG [Concomitant]
  9. DEXAMETHASONE [Concomitant]
     Active Substance: DEXAMETHASONE
  10. DIPHEN/ATROP TAB 2.5MG [Concomitant]
  11. GABAPENTIN GAP 100MG [Concomitant]
  12. HYDROCORT TAB 5MG [Concomitant]
  13. LORAZEPAM [Concomitant]
     Active Substance: LORAZEPAM
  14. ZOLPIDEM TAB l0MG [Concomitant]
  15. ONDANSETRON [Concomitant]
     Active Substance: ONDANSETRON
  16. LEVOTHYROXIN TAB 137MCG [Concomitant]
  17. LEVOTHYROXIN TAB 125MCG [Concomitant]
  18. PREDNISONE [Concomitant]
     Active Substance: PREDNISONE
  19. LATANOPROST SOL 0.005% [Concomitant]
  20. PREDNISOLONE SUS 1% OP [Concomitant]
  21. LEVOTHYROXIN TAB 125MCG [Concomitant]
  22. LEVOTHYROXIN TAB 125MCG [Concomitant]
  23. MEKTOVI [Concomitant]
     Active Substance: BINIMETINIB
  24. ONDANSETRON [Concomitant]
     Active Substance: ONDANSETRON
  25. SOLU-CORTEF INJ l00MG [Concomitant]
  26. LEVOTHYROXIN TAB 88MCG [Concomitant]
  27. LEVOTHYROXIN TAB 75MCG [Concomitant]
  28. LEVOTHYROXIN TAB l00MCG [Concomitant]
  29. NITROFURANTN CAP lO0MG [Concomitant]
  30. BRAFTOVI [Concomitant]
     Active Substance: ENCORAFENIB

REACTIONS (5)
  - Therapy interrupted [None]
  - Hospitalisation [None]
  - Product use issue [None]
  - Metastases to central nervous system [None]
  - Malignant neoplasm progression [None]
